FAERS Safety Report 24118850 (Version 1)
Quarter: 2024Q3

REPORT INFORMATION
  Report Type: Spontaneous
  Country: OM (occurrence: OM)
  Receive Date: 20240722
  Receipt Date: 20240722
  Transmission Date: 20241017
  Serious: Yes (Death, Life-Threatening, Hospitalization, Other)
  Sender: MACLEODS
  Company Number: OM-MACLEODS PHARMA-MAC2024048319

PATIENT

DRUGS (7)
  1. CELECOXIB [Suspect]
     Active Substance: CELECOXIB
     Indication: Urticaria
     Dosage: 10.5 MG/KG/DAY
     Route: 065
  2. NIACIN [Suspect]
     Active Substance: NIACIN
     Indication: Leukoencephalopathy
     Route: 065
  3. NIACIN [Suspect]
     Active Substance: NIACIN
     Dosage: (20 MG/KG/DAY)
     Route: 065
  4. NIACIN [Suspect]
     Active Substance: NIACIN
     Dosage: ESCALATED GRADUALLY BY 50 MG PER DAY TO 500 MG ONCE DAILY
     Route: 065
  5. NIACIN [Suspect]
     Active Substance: NIACIN
     Dosage: SUBSEQUENTLY TO 300 MG TWICE DAILY
     Route: 065
  6. Vitamin B complex/thiamine/pyridoxine [Concomitant]
     Indication: Product used for unknown indication
     Route: 065
  7. LEVOCARNITINE [Concomitant]
     Active Substance: LEVOCARNITINE
     Indication: Product used for unknown indication
     Route: 065

REACTIONS (4)
  - Leukoencephalopathy [Fatal]
  - Disease progression [Fatal]
  - Urticaria [Unknown]
  - Off label use [Unknown]
